FAERS Safety Report 4969048-2 (Version None)
Quarter: 2006Q2

REPORT INFORMATION
  Report Type: 
  Country: None (occurrence: None)
  Receive Date: 20060411
  Receipt Date: 20060404
  Transmission Date: 20061013
  Serious: Yes (Other)
  Sender: FDA-Public Use
  Company Number: PHEH2006US04468

PATIENT
  Age: 35 Year
  Sex: Female

DRUGS (1)
  1. TRILEPTAL [Suspect]
     Indication: BIPOLAR DISORDER

REACTIONS (1)
  - ANAPHYLACTIC REACTION [None]
